FAERS Safety Report 4703845-3 (Version None)
Quarter: 2005Q2

REPORT INFORMATION
  Report Type: 
  Country: None (occurrence: None)
  Receive Date: 20050630
  Receipt Date: 20050516
  Transmission Date: 20051028
  Serious: No
  Sender: FDA-Public Use
  Company Number: US-GLAXOSMITHKLINE-A0558801A

PATIENT
  Age: 75 Year
  Sex: Male

DRUGS (11)
  1. FLOVENT [Suspect]
     Indication: ASTHMA
     Route: 055
     Dates: start: 20050419, end: 20050101
  2. FUROSEMIDE [Concomitant]
  3. LOTREL [Concomitant]
  4. AVAPRO [Concomitant]
  5. DOXAZOSIN [Concomitant]
  6. GLYBURIDE [Concomitant]
  7. FORADIL [Concomitant]
  8. ALBUTEROL [Concomitant]
  9. MULTI-VITAMINS [Concomitant]
  10. ASCORBIC ACID [Concomitant]
  11. SUPPLEMENT [Concomitant]

REACTIONS (2)
  - AGEUSIA [None]
  - DYSGEUSIA [None]
